FAERS Safety Report 14690281 (Version 1)
Quarter: 2018Q1

REPORT INFORMATION
  Report Type: Spontaneous
  Country: FR (occurrence: FR)
  Receive Date: 20180328
  Receipt Date: 20180328
  Transmission Date: 20180509
  Serious: Yes (Hospitalization, Other)
  Sender: FDA-Public Use
  Company Number: FR-AKRON, INC.-2044703

PATIENT
  Age: 83 Year
  Sex: Female
  Weight: 57.5 kg

DRUGS (1)
  1. COSOPT [Suspect]
     Active Substance: DORZOLAMIDE HYDROCHLORIDE\TIMOLOL MALEATE
     Indication: MACULAR OEDEMA
     Route: 047

REACTIONS (4)
  - Renal failure [Recovering/Resolving]
  - Fall [Recovering/Resolving]
  - Bradycardia [Recovering/Resolving]
  - Off label use [Recovered/Resolved]

NARRATIVE: CASE EVENT DATE: 20180210
